FAERS Safety Report 15900882 (Version 1)
Quarter: 2019Q1

REPORT INFORMATION
  Report Type: Spontaneous
  Country: US (occurrence: US)
  Receive Date: 20190201
  Receipt Date: 20190201
  Transmission Date: 20190417
  Serious: No
  Sender: FDA-Public Use
  Company Number: US-JNJFOC-20190109698

PATIENT
  Age: 7 Decade
  Sex: Female
  Weight: 96.62 kg

DRUGS (2)
  1. MENS ROGAINE EXTRA STRENGTH [Suspect]
     Active Substance: MINOXIDIL
     Route: 061
  2. MENS ROGAINE EXTRA STRENGTH [Suspect]
     Active Substance: MINOXIDIL
     Indication: ALOPECIA
     Dosage: 2 ML OR A LITTLE BIT MORE ON FRIDAY
     Route: 061
     Dates: start: 20190104, end: 20190104

REACTIONS (4)
  - Off label use [Unknown]
  - Overdose [Unknown]
  - Skin burning sensation [Recovered/Resolved]
  - Product use issue [Unknown]
